FAERS Safety Report 8888268 (Version 3)
Quarter: 2013Q1

REPORT INFORMATION
  Report Type: Report from Study
  Country: BE (occurrence: BE)
  Receive Date: 20121106
  Receipt Date: 20130118
  Transmission Date: 20140127
  Serious: Yes (Death, Hospitalization, Other)
  Sender: FDA-Public Use
  Company Number: BE-GENZYME-CAMP-1002500

PATIENT
  Age: 65 Year
  Sex: Female
  Weight: 44.5 kg

DRUGS (20)
  1. CAMPATH [Suspect]
     Indication: T-CELL LYMPHOMA
     Dosage: 30 MG, UNK (1 TIMES IN EVERY 2 WEEKS)
     Route: 042
     Dates: start: 20120912, end: 20121017
  2. CAMPATH [Suspect]
     Dosage: UNK, CYCLE 4
     Route: 065
     Dates: start: 20121112
  3. CYCLOPHOSPHAMIDE [Suspect]
     Indication: T-CELL LYMPHOMA
     Dosage: 750 MG/M2, UNK (1 TIMES IN EVERY 2 WEEKS)
     Route: 042
     Dates: start: 20120912
  4. CYCLOPHOSPHAMIDE [Suspect]
     Dosage: UNK, CYCLE 4
     Route: 065
     Dates: start: 20121112
  5. DOXORUBICINE [Suspect]
     Indication: T-CELL LYMPHOMA
     Dosage: 50 MG/M2, UNK (1 TIMES IN 15 DAYS)
     Route: 042
     Dates: start: 20120912, end: 20121017
  6. DOXORUBICINE [Suspect]
     Dosage: UNK, CYCLE 4
     Route: 065
     Dates: start: 20121112
  7. VINCRISTINE [Suspect]
     Indication: T-CELL LYMPHOMA
     Dosage: 1 MG/M2, UNK (ONCE IN EVERY 2 WEEKS)
     Route: 042
     Dates: start: 20120905
  8. VINCRISTINE [Suspect]
     Dosage: 1.4 MG/M2, UNK (1 TIMES IN 15 DAYS)
     Route: 042
     Dates: start: 20120912, end: 20121017
  9. VINCRISTINE [Suspect]
     Dosage: UNK, CYCLE 4
     Route: 065
     Dates: start: 20121112
  10. VINCRISTINE [Suspect]
     Dosage: 1.4 MG/M2, UNK (FOLLOWING CYCLES)
     Route: 065
  11. PREDNISONE [Suspect]
     Indication: T-CELL LYMPHOMA
     Dosage: 32 MG, UNK, BEFORE PREPHASE, ON DAYS 1-3 AND AFTER CHEMOTHERAPY
     Route: 048
     Dates: start: 20120828, end: 201210
  12. PREDNISONE [Suspect]
     Dosage: UNK, CYCLE 4
     Route: 065
     Dates: start: 20121112
  13. PREDNISONE [Suspect]
     Dosage: 32 MG, QD
     Route: 048
     Dates: start: 20120828
  14. PEGFILGRASTIM [Suspect]
     Indication: T-CELL LYMPHOMA
     Dosage: 6 MG, UNK, ONCE PER CYCLE
     Route: 058
     Dates: start: 20120914
  15. AMLODIPINE [Concomitant]
     Indication: HYPERTENSION
     Dosage: 5 MG, BID
     Route: 048
     Dates: start: 20121016
  16. GANCICLOVIR [Concomitant]
     Indication: ANTIVIRAL PROPHYLAXIS
     Dosage: 230 MG, QD
     Route: 042
     Dates: start: 20120926
  17. ACICLOVIR [Concomitant]
     Indication: PROPHYLAXIS
     Dosage: 400 MG, BID
     Route: 048
  18. LORAZEPAM [Concomitant]
     Indication: INSOMNIA
     Dosage: 1 MG, QD
     Route: 048
  19. CALCIUM CARBONATE [Concomitant]
     Indication: PROPHYLAXIS
     Dosage: 1 G, QD
     Route: 048
  20. COLECALCIFEROL [Concomitant]
     Indication: PROPHYLAXIS
     Dosage: 880 IU, QD
     Route: 048

REACTIONS (7)
  - Death [Fatal]
  - General physical health deterioration [Recovered/Resolved]
  - Parkinson^s disease [Fatal]
  - Depression [Not Recovered/Not Resolved]
  - Febrile neutropenia [Recovered/Resolved]
  - Febrile neutropenia [Recovered/Resolved]
  - Platelet count decreased [Not Recovered/Not Resolved]
